FAERS Safety Report 5226121-1 (Version None)
Quarter: 2007Q1

REPORT INFORMATION
  Report Type: 
  Country: None (occurrence: None)
  Receive Date: 20070201
  Receipt Date: 20070123
  Transmission Date: 20070707
  Serious: Yes (Death, Other)
  Sender: FDA-Public Use
  Company Number: FR-GLAXOSMITHKLINE-B0241482A

PATIENT
  Age: 31 Year
  Sex: Female

DRUGS (3)
  1. HALOFANTRINE [Suspect]
     Indication: MALARIA
     Dosage: 500MG FOUR TIMES PER DAY
     Route: 065
  2. CHLOROQUINE [Suspect]
     Indication: MALARIA PROPHYLAXIS
     Route: 065
  3. PROGUANIL [Concomitant]
     Indication: MALARIA PROPHYLAXIS
     Route: 065

REACTIONS (11)
  - ANAEMIA MACROCYTIC [None]
  - BLOOD PRESSURE SYSTOLIC DECREASED [None]
  - CARDIAC ARREST [None]
  - CARDIAC FAILURE [None]
  - ELECTROCARDIOGRAM QT PROLONGED [None]
  - LOSS OF CONSCIOUSNESS [None]
  - MALAISE [None]
  - SUPRAVENTRICULAR TACHYCARDIA [None]
  - THROMBOCYTOPENIA [None]
  - TORSADE DE POINTES [None]
  - VENTRICULAR TACHYCARDIA [None]
